FAERS Safety Report 4595644-0 (Version None)
Quarter: 2005Q1

REPORT INFORMATION
  Report Type: 
  Country: None (occurrence: None)
  Receive Date: 20050224
  Receipt Date: 20050214
  Transmission Date: 20050727
  Serious: Yes (Other)
  Sender: FDA-Public Use
  Company Number: 2005030986

PATIENT
  Sex: Female

DRUGS (1)
  1. PROVERA [Suspect]
     Indication: OVARIAN CANCER
     Dosage: 60 MG (200 MG, TID INTERVAL: EVERY DAY), ORAL
     Route: 048

REACTIONS (3)
  - DYSPHAGIA [None]
  - MALIGNANT NEOPLASM PROGRESSION [None]
  - OVARIAN CANCER [None]
